FAERS Safety Report 19509129 (Version 1)
Quarter: 2021Q3

REPORT INFORMATION
  Report Type: Spontaneous
  Country: CA (occurrence: CA)
  Receive Date: 20210709
  Receipt Date: 20210709
  Transmission Date: 20211014
  Serious: Yes (Disabling, Other)
  Sender: FDA-Public Use
  Company Number: CA-COLGATE PALMOLIVE COMPANY-20210701505

PATIENT
  Age: 44 Year
  Sex: Female
  Weight: 97 kg

DRUGS (57)
  1. PREDNISONE. [Suspect]
     Active Substance: PREDNISONE
     Indication: PRODUCT USED FOR UNKNOWN INDICATION
     Dosage: 7.5 MILLIGRAM
     Route: 048
  2. OXYCODONE TEREPHTHALATE [Suspect]
     Active Substance: OXYCODONE TEREPHTHALATE
     Indication: PRODUCT USED FOR UNKNOWN INDICATION
     Dosage: UNK
     Route: 065
  3. METHOTREXATE. [Suspect]
     Active Substance: METHOTREXATE
     Dosage: 20 MILLIGRAM
     Route: 048
  4. METHOTREXATE. [Suspect]
     Active Substance: METHOTREXATE
     Dosage: 25 MILLIGRAM
     Route: 048
  5. DESOGESTREL AND ETHINYL ESTRADIOL [Concomitant]
     Active Substance: DESOGESTREL\ETHINYL ESTRADIOL
     Indication: PRODUCT USED FOR UNKNOWN INDICATION
     Route: 065
  6. ENBREL [Suspect]
     Active Substance: ETANERCEPT
     Indication: RHEUMATOID ARTHRITIS
     Dosage: UNK
     Route: 065
  7. HUMIRA [Suspect]
     Active Substance: ADALIMUMAB
     Indication: RHEUMATOID ARTHRITIS
     Dosage: 40 MILLIGRAM
     Route: 058
  8. OXYCODONE [Suspect]
     Active Substance: OXYCODONE
     Indication: PRODUCT USED FOR UNKNOWN INDICATION
     Dosage: UNK
     Route: 065
  9. PSEUDOEPHEDRINE. [Suspect]
     Active Substance: PSEUDOEPHEDRINE HYDROCHLORIDE
     Indication: PRODUCT USED FOR UNKNOWN INDICATION
     Dosage: UNK
     Route: 065
  10. SULFAMETHOXAZOLE [Suspect]
     Active Substance: SULFAMETHOXAZOLE
     Indication: PRODUCT USED FOR UNKNOWN INDICATION
     Dosage: UNK
     Route: 065
  11. ACETAMINOPHEN. [Suspect]
     Active Substance: ACETAMINOPHEN
     Indication: PRODUCT USED FOR UNKNOWN INDICATION
     Dosage: UNK
     Route: 065
  12. DESOXIMETASONE. [Suspect]
     Active Substance: DESOXIMETASONE
     Indication: RHEUMATOID ARTHRITIS
     Dosage: 25 MILLIGRAM
     Route: 061
  13. DESOXIMETASONE. [Suspect]
     Active Substance: DESOXIMETASONE
     Dosage: UNK
     Route: 048
  14. CETIRIZINE DIHYDROCHLORIDE [Suspect]
     Active Substance: CETIRIZINE HYDROCHLORIDE
     Dosage: 10 MILLIGRAM
     Route: 065
  15. LEFLUNOMIDE. [Suspect]
     Active Substance: LEFLUNOMIDE
     Indication: PRODUCT USED FOR UNKNOWN INDICATION
     Dosage: UNK
     Route: 048
  16. PANTOPRAZOLE SODIUM ANHYDROUS [Concomitant]
     Active Substance: PANTOPRAZOLE SODIUM ANHYDROUS
     Indication: PRODUCT USED FOR UNKNOWN INDICATION
     Dosage: UNK
     Route: 065
  17. CHLORHEXIDINE UNSPECIFIED [Suspect]
     Active Substance: CHLORHEXIDINE
     Indication: PRODUCT USED FOR UNKNOWN INDICATION
     Dosage: UNK
     Route: 061
  18. CHLORHEXIDINE UNSPECIFIED [Suspect]
     Active Substance: CHLORHEXIDINE
     Dosage: UNK
     Route: 065
  19. CHLORHEXIDINE GLUCONATE UNSPECIFIED [Suspect]
     Active Substance: CHLORHEXIDINE GLUCONATE
     Dosage: UNK
     Route: 065
  20. SULFAMETHOXAZOLE;TRIMETHOPRIM [Suspect]
     Active Substance: SULFAMETHOXAZOLE\TRIMETHOPRIM
     Indication: PRODUCT USED FOR UNKNOWN INDICATION
     Dosage: UNK
     Route: 065
  21. ACTEMRA [Suspect]
     Active Substance: TOCILIZUMAB
     Dosage: UNK
     Route: 042
  22. CIMZIA [Suspect]
     Active Substance: CERTOLIZUMAB PEGOL
     Indication: RHEUMATOID ARTHRITIS
     Dosage: UNK
     Route: 058
  23. ORENCIA [Suspect]
     Active Substance: ABATACEPT
     Indication: RHEUMATOID ARTHRITIS
     Dosage: UNK
     Route: 042
  24. FOLIC ACID. [Suspect]
     Active Substance: FOLIC ACID
     Indication: RHEUMATOID ARTHRITIS
     Dosage: 1 MILLIGRAM
     Route: 065
  25. METHOTREXATE. [Suspect]
     Active Substance: METHOTREXATE
     Dosage: 20 MILLIGRAM, QD
     Route: 048
  26. PLAQUENIL [Suspect]
     Active Substance: HYDROXYCHLOROQUINE SULFATE
     Indication: RHEUMATOID ARTHRITIS
     Dosage: 400 MILLIGRAM
     Route: 048
  27. HYDROXYCHLOROQUINE SULFATE. [Suspect]
     Active Substance: HYDROXYCHLOROQUINE SULFATE
     Indication: RHEUMATOID ARTHRITIS
     Dosage: UNK
     Route: 048
  28. SALAZOPYRIN [Concomitant]
     Active Substance: SULFASALAZINE
     Indication: PRODUCT USED FOR UNKNOWN INDICATION
     Dosage: UNK
     Route: 065
  29. TYLENOL [Concomitant]
     Active Substance: ACETAMINOPHEN
     Indication: PRODUCT USED FOR UNKNOWN INDICATION
     Route: 065
  30. ARAVA [Suspect]
     Active Substance: LEFLUNOMIDE
     Indication: RHEUMATOID ARTHRITIS
     Dosage: 20 MILLIGRAM
     Route: 048
  31. SULFASALAZINE. [Suspect]
     Active Substance: SULFASALAZINE
     Indication: RHEUMATOID ARTHRITIS
     Dosage: UNK
     Route: 048
  32. SULFASALAZINE. [Suspect]
     Active Substance: SULFASALAZINE
     Dosage: 500 MILLIGRAM
     Route: 048
  33. ACTEMRA [Suspect]
     Active Substance: TOCILIZUMAB
     Indication: RHEUMATOID ARTHRITIS
     Dosage: UNK
     Route: 058
  34. OXYCODONE HYDROCHLORIDE;PARACETAMOL [Suspect]
     Active Substance: ACETAMINOPHEN\OXYCODONE HYDROCHLORIDE
     Indication: PRODUCT USED FOR UNKNOWN INDICATION
     Dosage: UNK
     Route: 065
  35. CETIRIZINE DIHYDROCHLORIDE [Suspect]
     Active Substance: CETIRIZINE HYDROCHLORIDE
     Indication: RHEUMATOID ARTHRITIS
     Dosage: UNK
     Route: 065
  36. FOLIC ACID. [Suspect]
     Active Substance: FOLIC ACID
     Indication: RHEUMATOID ARTHRITIS
     Dosage: 5 MILLIGRAM
     Route: 065
  37. TYLENOL WITH CODEINE [Concomitant]
     Active Substance: ACETAMINOPHEN\CODEINE PHOSPHATE
     Indication: PRODUCT USED FOR UNKNOWN INDICATION
     Dosage: UNK
     Route: 065
  38. FOSAMAX [Suspect]
     Active Substance: ALENDRONATE SODIUM
     Indication: RHEUMATOID ARTHRITIS
     Dosage: UNK
     Route: 048
  39. DICLOFENAC [Suspect]
     Active Substance: DICLOFENAC
     Indication: PRODUCT USED FOR UNKNOWN INDICATION
     Dosage: UNK
     Route: 065
  40. CETIRIZINE DIHYDROCHLORIDE [Suspect]
     Active Substance: CETIRIZINE HYDROCHLORIDE
     Indication: RHEUMATOID ARTHRITIS
     Dosage: UNK
     Route: 065
  41. TRIAMCINOLONE ACETONIDE. [Suspect]
     Active Substance: TRIAMCINOLONE ACETONIDE
     Indication: PRODUCT USED FOR UNKNOWN INDICATION
     Dosage: UNK
     Route: 003
  42. METHOTREXATE. [Suspect]
     Active Substance: METHOTREXATE
     Dosage: 20 MILLIGRAM, QWK
     Route: 048
  43. ENBREL [Suspect]
     Active Substance: ETANERCEPT
     Dosage: UNK
     Route: 058
  44. HYDROXYCHLOROQUINE SULFATE. [Suspect]
     Active Substance: HYDROXYCHLOROQUINE SULFATE
     Indication: RHEUMATOID ARTHRITIS
     Dosage: 400 MILLIGRAM
     Route: 048
  45. XELJANZ [Suspect]
     Active Substance: TOFACITINIB CITRATE
     Indication: RHEUMATOID ARTHRITIS
     Dosage: 10 MILLIGRAM
     Route: 065
  46. XELJANZ [Suspect]
     Active Substance: TOFACITINIB CITRATE
     Dosage: UNK
     Route: 065
  47. SIMPONI [Suspect]
     Active Substance: GOLIMUMAB
     Indication: RHEUMATOID ARTHRITIS
     Dosage: UNK
     Route: 058
  48. RITUXIMAB. [Suspect]
     Active Substance: RITUXIMAB
     Indication: RHEUMATOID ARTHRITIS
     Dosage: UNK
     Route: 042
  49. APO?PREDNISONE [Suspect]
     Active Substance: PREDNISONE
     Indication: PRODUCT USED FOR UNKNOWN INDICATION
     Dosage: UNK
     Route: 048
  50. REMICADE [Suspect]
     Active Substance: INFLIXIMAB
     Indication: RHEUMATOID ARTHRITIS
     Dosage: UNK
     Route: 042
  51. IBUPROFEN. [Concomitant]
     Active Substance: IBUPROFEN
     Indication: PRODUCT USED FOR UNKNOWN INDICATION
     Route: 065
  52. ACETAMINOPHEN. [Concomitant]
     Active Substance: ACETAMINOPHEN
     Indication: PRODUCT USED FOR UNKNOWN INDICATION
     Dosage: UNK
     Route: 065
  53. CHLORHEXIDINE GLUCONATE UNSPECIFIED [Suspect]
     Active Substance: CHLORHEXIDINE GLUCONATE
     Indication: PRODUCT USED FOR UNKNOWN INDICATION
     Dosage: UNK
     Route: 002
  54. ACTEMRA [Suspect]
     Active Substance: TOCILIZUMAB
     Indication: RHEUMATOID ARTHRITIS
     Dosage: 728 MILLIGRAM
     Route: 042
  55. REMICADE [Suspect]
     Active Substance: INFLIXIMAB
     Indication: RHEUMATOID ARTHRITIS
     Dosage: 500 MILLIGRAM
     Route: 042
  56. METHOTREXATE. [Suspect]
     Active Substance: METHOTREXATE
     Indication: RHEUMATOID ARTHRITIS
     Dosage: 25 MILLIGRAM
     Route: 048
  57. PANTOPRAZOLE [Concomitant]
     Active Substance: PANTOPRAZOLE
     Indication: PRODUCT USED FOR UNKNOWN INDICATION
     Dosage: UNK
     Route: 065

REACTIONS (46)
  - Wound [Not Recovered/Not Resolved]
  - Glossodynia [Not Recovered/Not Resolved]
  - Synovitis [Not Recovered/Not Resolved]
  - Nasopharyngitis [Not Recovered/Not Resolved]
  - Impaired healing [Not Recovered/Not Resolved]
  - Systemic lupus erythematosus [Not Recovered/Not Resolved]
  - Weight increased [Not Recovered/Not Resolved]
  - Rash [Not Recovered/Not Resolved]
  - Muscle injury [Not Recovered/Not Resolved]
  - Helicobacter infection [Not Recovered/Not Resolved]
  - Anti-cyclic citrullinated peptide antibody positive [Not Recovered/Not Resolved]
  - Stomatitis [Not Recovered/Not Resolved]
  - Lower respiratory tract infection [Not Recovered/Not Resolved]
  - Sinusitis [Not Recovered/Not Resolved]
  - Maternal exposure during pregnancy [Unknown]
  - Rheumatoid arthritis [Not Recovered/Not Resolved]
  - Arthralgia [Not Recovered/Not Resolved]
  - Blister [Not Recovered/Not Resolved]
  - Swelling [Not Recovered/Not Resolved]
  - Infection [Not Recovered/Not Resolved]
  - Hand deformity [Not Recovered/Not Resolved]
  - Pemphigus [Not Recovered/Not Resolved]
  - Pain [Not Recovered/Not Resolved]
  - Sleep disorder due to general medical condition, insomnia type [Not Recovered/Not Resolved]
  - Arthropathy [Not Recovered/Not Resolved]
  - Dyspnoea [Not Recovered/Not Resolved]
  - Duodenal ulcer perforation [Not Recovered/Not Resolved]
  - Hepatic enzyme increased [Not Recovered/Not Resolved]
  - Therapeutic product effect decreased [Unknown]
  - Drug intolerance [Not Recovered/Not Resolved]
  - Confusional state [Not Recovered/Not Resolved]
  - Abdominal discomfort [Not Recovered/Not Resolved]
  - Hypersensitivity [Not Recovered/Not Resolved]
  - Drug ineffective [Unknown]
  - Irritable bowel syndrome [Not Recovered/Not Resolved]
  - Pruritus [Not Recovered/Not Resolved]
  - Gastrointestinal disorder [Not Recovered/Not Resolved]
  - Discomfort [Not Recovered/Not Resolved]
  - Joint swelling [Not Recovered/Not Resolved]
  - Pyrexia [Not Recovered/Not Resolved]
  - Peripheral swelling [Not Recovered/Not Resolved]
  - Alopecia [Not Recovered/Not Resolved]
  - Infusion related reaction [Not Recovered/Not Resolved]
  - Folliculitis [Not Recovered/Not Resolved]
  - Pericarditis [Not Recovered/Not Resolved]
  - Fatigue [Not Recovered/Not Resolved]
